FAERS Safety Report 7126066-6 (Version None)
Quarter: 2010Q4

REPORT INFORMATION
  Report Type: 
  Country: None (occurrence: None)
  Receive Date: 20101129
  Receipt Date: 20101115
  Transmission Date: 20110411
  Serious: Yes (Hospitalization)
  Sender: FDA-Public Use
  Company Number: JP-MERCK-1009USA04316

PATIENT
  Age: 50 Year
  Sex: Male
  Weight: 60 kg

DRUGS (9)
  1. PEPCID RPD [Suspect]
     Indication: PROPHYLAXIS AGAINST GASTROINTESTINAL ULCER
     Route: 048
     Dates: start: 20090212, end: 20090216
  2. ALEVIATIN [Suspect]
     Indication: BRAIN CANCER METASTATIC
     Route: 042
     Dates: start: 20090202, end: 20090215
  3. DEPAKENE [Concomitant]
     Indication: BRAIN NEOPLASM
     Route: 065
     Dates: start: 20090212, end: 20090216
  4. SOLDEM 3A [Concomitant]
     Indication: SMALL CELL LUNG CANCER STAGE UNSPECIFIED
     Route: 065
     Dates: start: 20090205, end: 20090312
  5. SOLDEM 3A [Concomitant]
     Indication: BRAIN NEOPLASM
     Route: 065
     Dates: start: 20090205, end: 20090312
  6. BROACT [Concomitant]
     Indication: ANTIBIOTIC PROPHYLAXIS
     Route: 065
     Dates: start: 20090215, end: 20090215
  7. GLYCEREB [Concomitant]
     Indication: BRAIN NEOPLASM
     Route: 065
     Dates: start: 20090202, end: 20090316
  8. PHENOBAL [Concomitant]
     Indication: BRAIN NEOPLASM
     Route: 065
     Dates: start: 20090205, end: 20090227
  9. DECADRON [Concomitant]
     Indication: BRAIN NEOPLASM
     Route: 065

REACTIONS (3)
  - MALIGNANT NEOPLASM PROGRESSION [None]
  - SMALL CELL LUNG CANCER STAGE UNSPECIFIED [None]
  - STEVENS-JOHNSON SYNDROME [None]
